FAERS Safety Report 21440825 (Version 1)
Quarter: 2022Q4

REPORT INFORMATION
  Report Type: Spontaneous
  Country: US (occurrence: US)
  Receive Date: 20221011
  Receipt Date: 20221011
  Transmission Date: 20230112
  Serious: No
  Sender: FDA-Public Use
  Company Number: US-ALKERMES INC.-ALK-2022-004519

PATIENT
  Age: 25 Year
  Sex: Female

DRUGS (4)
  1. LYBALVI [Suspect]
     Active Substance: OLANZAPINE\SAMIDORPHAN L-MALATE
     Indication: Bipolar disorder
     Dosage: 5/10 MILLIGRAM, QD
     Route: 048
  2. LYBALVI [Suspect]
     Active Substance: OLANZAPINE\SAMIDORPHAN L-MALATE
     Dosage: 5/10 MILLIGRAM, 3 TIMES/WK
     Route: 048
  3. ZYPREXA [Concomitant]
     Active Substance: OLANZAPINE
     Indication: Bipolar disorder
  4. ZYPREXA [Concomitant]
     Active Substance: OLANZAPINE
     Indication: Mania

REACTIONS (2)
  - Sedation [Unknown]
  - Off label use [Unknown]
